FAERS Safety Report 13111203 (Version 2)
Quarter: 2017Q1

REPORT INFORMATION
  Report Type: Spontaneous
  Country: US (occurrence: US)
  Receive Date: 20170112
  Receipt Date: 20170128
  Transmission Date: 20170428
  Serious: No
  Sender: FDA-Public Use
  Company Number: US-009507513-1701USA000964

PATIENT
  Age: 18 Year
  Sex: Female
  Weight: 65.77 kg

DRUGS (1)
  1. IMPLANON [Suspect]
     Active Substance: ETONOGESTREL
     Indication: CONTRACEPTION
     Dosage: 1 DF EVERY 3 YEARS, LEFT ARM
     Route: 059
     Dates: start: 20161228

REACTIONS (1)
  - Limb mass [Unknown]

NARRATIVE: CASE EVENT DATE: 20161228
